FAERS Safety Report 5154832-5 (Version None)
Quarter: 2006Q4

REPORT INFORMATION
  Report Type: 
  Country: None (occurrence: None)
  Receive Date: 20061121
  Receipt Date: 20061110
  Transmission Date: 20070319
  Serious: Yes (Other)
  Sender: FDA-Public Use
  Company Number: US-JNJFOC-20061103308

PATIENT
  Age: 43 Year
  Sex: Female
  Weight: 59.42 kg

DRUGS (5)
  1. TOPAMAX [Suspect]
     Route: 048
  2. TOPAMAX [Suspect]
     Indication: MIGRAINE
     Route: 048
  3. FLU SHOT [Concomitant]
     Indication: IMMUNISATION
     Route: 050
  4. PNEUMONIA SHOT [Concomitant]
     Indication: IMMUNISATION
     Route: 050
  5. IMITREX [Concomitant]
     Indication: HEADACHE

REACTIONS (10)
  - ASTHMA [None]
  - CHEST DISCOMFORT [None]
  - DYSPNOEA [None]
  - HEADACHE [None]
  - HEART RATE IRREGULAR [None]
  - HYPERACUSIS [None]
  - IRRITABILITY [None]
  - MIGRAINE WITH AURA [None]
  - PARAESTHESIA [None]
  - PULMONARY CONGESTION [None]
